FAERS Safety Report 4336486-0 (Version None)
Quarter: 2004Q2

REPORT INFORMATION
  Report Type: 
  Country: None (occurrence: None)
  Receive Date: 20040412
  Receipt Date: 20040406
  Transmission Date: 20050107
  Serious: Yes (Other)
  Sender: FDA-Public Use
  Company Number: US-JNJFOC-20040305321

PATIENT
  Sex: Female

DRUGS (6)
  1. DURAGESIC [Suspect]
     Dosage: TWO 75 UG/HR PATCHES
     Route: 062
     Dates: start: 20020701
  2. NORCO [Concomitant]
     Route: 049
  3. NORCO [Concomitant]
     Indication: PAIN
     Dosage: 10 MG/650 MG, AS NEEDED
     Route: 049
  4. SOMA [Concomitant]
     Indication: DRUG USE FOR UNKNOWN INDICATION
     Route: 049
  5. TEMAZEPAM [Concomitant]
     Indication: DRUG USE FOR UNKNOWN INDICATION
  6. LORAZEPAM [Concomitant]
     Indication: DRUG USE FOR UNKNOWN INDICATION

REACTIONS (6)
  - APPLICATION SITE BURNING [None]
  - APPLICATION SITE ERYTHEMA [None]
  - APPLICATION SITE PRURITUS [None]
  - GRAND MAL CONVULSION [None]
  - MEDICATION ERROR [None]
  - PHARMACEUTICAL PRODUCT COMPLAINT [None]
